FAERS Safety Report 17250974 (Version 2)
Quarter: 2020Q3

REPORT INFORMATION
  Report Type: Spontaneous
  Country: FR (occurrence: FR)
  Receive Date: 20200109
  Receipt Date: 20200718
  Transmission Date: 20201102
  Serious: Yes (Death)
  Sender: FDA-Public Use
  Company Number: FR-ACCORD-168985

PATIENT
  Age: 64 Year
  Sex: Female

DRUGS (1)
  1. PACLITAXEL ACCORD [Suspect]
     Active Substance: PACLITAXEL
     Indication: ADENOCARCINOMA
     Dosage: 80% OF THE THEORETICAL DOSE
     Route: 042
     Dates: start: 20191220, end: 20191220

REACTIONS (2)
  - Anaphylactic shock [Fatal]
  - Product supply issue [Fatal]

NARRATIVE: CASE EVENT DATE: 20191220
